FAERS Safety Report 11246822 (Version 1)
Quarter: 2015Q3

REPORT INFORMATION
  Report Type: Report from Study
  Country: US (occurrence: US)
  Receive Date: 20150708
  Receipt Date: 20150708
  Transmission Date: 20151125
  Serious: Yes (Other)
  Sender: FDA-Public Use
  Company Number: US-BIOGENIDEC-2015BI093271

PATIENT
  Sex: Female

DRUGS (1)
  1. AVONEX [Suspect]
     Active Substance: INTERFERON BETA-1A
     Indication: MULTIPLE SCLEROSIS
     Route: 030
     Dates: start: 20000211

REACTIONS (5)
  - Colostomy [Unknown]
  - Procedural complication [Unknown]
  - Multiple sclerosis [Recovered/Resolved]
  - Musculoskeletal disorder [Unknown]
  - Functional gastrointestinal disorder [Recovered/Resolved]
